FAERS Safety Report 21882667 (Version 1)
Quarter: 2023Q1

REPORT INFORMATION
  Report Type: Report from Study
  Country: US (occurrence: US)
  Receive Date: 20230119
  Receipt Date: 20230119
  Transmission Date: 20230418
  Serious: No
  Sender: FDA-Public Use
  Company Number: US-Accord-260531

PATIENT
  Age: 18 Year
  Sex: Male

DRUGS (1)
  1. CLOZAPINE [Suspect]
     Active Substance: CLOZAPINE
     Indication: Schizophrenia
     Dosage: DECREASED TO 50MG ON 01-APR-2022

REACTIONS (4)
  - Psychiatric symptom [Not Recovered/Not Resolved]
  - Screaming [Not Recovered/Not Resolved]
  - Sleep disorder [Not Recovered/Not Resolved]
  - Staring [Not Recovered/Not Resolved]

NARRATIVE: CASE EVENT DATE: 20220404
